FAERS Safety Report 7184469-8 (Version None)
Quarter: 2010Q4

REPORT INFORMATION
  Report Type: 
  Country: None (occurrence: None)
  Receive Date: 20101222
  Receipt Date: 20101213
  Transmission Date: 20110411
  Serious: Yes (Hospitalization)
  Sender: FDA-Public Use
  Company Number: FR-ASTRAZENECA-2010SE59246

PATIENT
  Age: 33870 Day
  Sex: Male

DRUGS (5)
  1. NEXIUM [Suspect]
     Indication: HAEMORRHAGE
     Route: 048
  2. NEXIUM [Suspect]
     Route: 048
     Dates: start: 20100919, end: 20100924
  3. DIPRIVAN [Suspect]
     Indication: INDUCTION OF ANAESTHESIA
     Dosage: ONCE
     Route: 042
     Dates: start: 20100921, end: 20100921
  4. SUFENTA PRESERVATIVE FREE [Suspect]
     Indication: INDUCTION OF ANAESTHESIA
     Dosage: ONCE
     Route: 042
     Dates: start: 20100921, end: 20100921
  5. EPHEDRINE [Suspect]
     Indication: INDUCTION OF ANAESTHESIA
     Dosage: ONCE
     Route: 042
     Dates: start: 20100921, end: 20100921

REACTIONS (1)
  - CONFUSIONAL STATE [None]
